FAERS Safety Report 12196338 (Version 2)
Quarter: 2016Q1

REPORT INFORMATION
  Report Type: Spontaneous
  Country: TR (occurrence: TR)
  Receive Date: 20160321
  Receipt Date: 20160323
  Transmission Date: 20160526
  Serious: Yes (Hospitalization, Other)
  Sender: FDA-Public Use
  Company Number: TR-BAYER-2016-050526

PATIENT
  Age: 9 Year
  Sex: Female
  Weight: 42 kg

DRUGS (1)
  1. ACETYLSALICYLIC ACID (} 100 MG) [Suspect]
     Active Substance: ASPIRIN
     Indication: ANTIINFLAMMATORY THERAPY
     Dosage: 3 G, QD

REACTIONS (4)
  - Off label use [None]
  - Toxicity to various agents [Recovered/Resolved]
  - Drug reaction with eosinophilia and systemic symptoms [Recovered/Resolved]
  - Overdose [None]
